FAERS Safety Report 9626131 (Version 1)
Quarter: 2013Q4

REPORT INFORMATION
  Report Type: Spontaneous
  Country: US (occurrence: None)
  Receive Date: 20131015
  Receipt Date: 20131015
  Transmission Date: 20140711
  Serious: Yes (Disabling)
  Sender: FDA-Public Use
  Company Number: None

PATIENT
  Age: 42 Year
  Sex: Female
  Weight: 65.77 kg

DRUGS (9)
  1. CIPROFLOXACIN 500MG [Suspect]
     Indication: URINARY TRACT INFECTION
     Route: 048
     Dates: start: 20121214, end: 20121220
  2. CEPHALEXIN [Suspect]
     Indication: PROPHYLAXIS
     Route: 048
     Dates: start: 20130403, end: 20130409
  3. PEPCID [Concomitant]
  4. CRESTOR [Concomitant]
  5. PERCOCET [Concomitant]
  6. ASPIRIN [Concomitant]
  7. MULTIVITAMIN [Concomitant]
  8. TOPROL XL [Concomitant]
  9. PROTONIX [Concomitant]

REACTIONS (5)
  - Arthralgia [None]
  - Tendonitis [None]
  - Tendon rupture [None]
  - Hypoaesthesia [None]
  - Paraesthesia [None]
